FAERS Safety Report 25920012 (Version 1)
Quarter: 2025Q4

REPORT INFORMATION
  Report Type: Spontaneous
  Country: US (occurrence: None)
  Receive Date: 20251010
  Receipt Date: 20251010
  Transmission Date: 20260118
  Serious: No
  Sender: FDA-CTU
  Company Number: None

PATIENT
  Sex: Male

DRUGS (1)
  1. NUBEQA [Suspect]
     Active Substance: DAROLUTAMIDE
     Indication: Prostate cancer
     Dosage: 300 MG TWICE A DAY ORAL ?
     Route: 048
     Dates: start: 20250817

REACTIONS (6)
  - Dementia [None]
  - Personality change [None]
  - Irritability [None]
  - Balance disorder [None]
  - Fall [None]
  - Therapy cessation [None]
